FAERS Safety Report 8535273-7 (Version None)
Quarter: 2012Q3

REPORT INFORMATION
  Report Type: 
  Country: None (occurrence: None)
  Receive Date: 20120725
  Receipt Date: 20120719
  Transmission Date: 20120928
  Serious: No
  Sender: FDA-Public Use
  Company Number: US-TEVA-349430USA

PATIENT
  Sex: Male

DRUGS (2)
  1. NUVIGIL [Suspect]
     Indication: SOMNOLENCE
  2. NUVIGIL [Suspect]
     Indication: HYPERSOMNIA
     Dates: start: 20090101

REACTIONS (3)
  - DRUG EFFECT DECREASED [None]
  - OFF LABEL USE [None]
  - SLUGGISHNESS [None]
